FAERS Safety Report 7830898-6 (Version None)
Quarter: 2011Q4

REPORT INFORMATION
  Report Type: 
  Country: None (occurrence: None)
  Receive Date: 20111021
  Receipt Date: 20111018
  Transmission Date: 20120403
  Serious: Yes (Other)
  Sender: FDA-Public Use
  Company Number: BR-PFIZER INC-2011197613

PATIENT
  Age: 52 Year
  Sex: Female
  Weight: 79 kg

DRUGS (12)
  1. VARENICLINE TARTRATE [Suspect]
     Indication: SMOKING CESSATION THERAPY
     Dosage: 0.5 MG, 1X/DAY
     Route: 048
     Dates: start: 20110805, end: 20110801
  2. ALPRAZOLAM [Concomitant]
     Indication: SLEEP DISORDER
  3. VARENICLINE TARTRATE [Suspect]
     Dosage: 0.5 MG, 2X/DAY
     Route: 048
     Dates: start: 20110801, end: 20110801
  4. VARENICLINE TARTRATE [Suspect]
     Dosage: 1 MG, 1X/DAY + 2 TABLETS DAILY TWICE A WEEK
     Route: 048
     Dates: start: 20110101
  5. ATACAND [Concomitant]
     Indication: HYPERTENSION
     Dosage: 16 MG, UNK
     Dates: start: 20080101
  6. LEXAPRO [Concomitant]
     Indication: MENTAL DISORDER
     Dosage: UNK
     Dates: start: 20010101
  7. LEXAPRO [Concomitant]
     Indication: ANTIDEPRESSANT THERAPY
  8. CLINFAR [Concomitant]
     Indication: BLOOD CHOLESTEROL INCREASED
     Dosage: 40 MG, DAILY
     Dates: start: 20110701
  9. SYNTHROID [Concomitant]
     Indication: HYPOTHYROIDISM
     Dosage: UNK
     Dates: start: 20010101
  10. VARENICLINE TARTRATE [Suspect]
     Dosage: 1 MG, 2X/DAY
     Route: 048
     Dates: start: 20110801
  11. SYNTHROID [Concomitant]
     Indication: THYROID DISORDER
  12. ALPRAZOLAM [Concomitant]
     Indication: MENTAL DISORDER
     Dosage: 1 MG, DAILY
     Dates: start: 20000101

REACTIONS (2)
  - BEDRIDDEN [None]
  - DISORIENTATION [None]
